FAERS Safety Report 7290816-9 (Version None)
Quarter: 2011Q1

REPORT INFORMATION
  Report Type: 
  Country: None (occurrence: None)
  Receive Date: 20110214
  Receipt Date: 20110208
  Transmission Date: 20110831
  Serious: Yes (Death, Life-Threatening, Hospitalization)
  Sender: FDA-Public Use
  Company Number: FR-SANOFI-AVENTIS-200915921GDDC

PATIENT
  Age: 45 Year
  Sex: Male
  Weight: 63 kg

DRUGS (19)
  1. SOLUPRED [Concomitant]
  2. DOCETAXEL [Suspect]
     Dosage: DOSE UNIT: 75 MG/M**2
     Route: 042
     Dates: start: 20090618, end: 20090618
  3. ACTISKENAN [Concomitant]
     Dates: start: 20090429
  4. XANAX [Concomitant]
     Dates: start: 20090403, end: 20090605
  5. FORLAX [Concomitant]
     Dates: start: 20090403
  6. ZOPHREN [Concomitant]
  7. FLUTICASONE W/SALMETEROL [Concomitant]
     Dates: start: 20090427, end: 20090605
  8. BI PROFENID [Concomitant]
     Dates: start: 20090524, end: 20090608
  9. SPECIAFOLDINE [Concomitant]
     Dates: start: 20090403, end: 20090526
  10. CORTICOSTEROIDS [Concomitant]
  11. SKENAN [Concomitant]
     Dates: start: 20090429
  12. ESOMEPRAZOLE [Concomitant]
     Dates: start: 20090518
  13. PLACEBO [Suspect]
     Indication: NON-SMALL CELL LUNG CANCER
     Dosage: DOSE UNIT: 6 MG/KG
     Route: 042
     Dates: start: 20090526, end: 20090526
  14. DOCETAXEL [Suspect]
     Indication: NON-SMALL CELL LUNG CANCER
     Dosage: DOSE UNIT: 75 MG/M**2
     Route: 042
     Dates: start: 20090526, end: 20090526
  15. SODIUM ALGINATE/SODIUM BICARBONATE [Concomitant]
     Dates: start: 20090403, end: 20090605
  16. KETOPROFEN [Concomitant]
     Dates: start: 20090518, end: 20090523
  17. PRIMPERAN TAB [Concomitant]
  18. DAFALGAN [Concomitant]
     Dates: start: 20090403
  19. KETOPROFEN [Concomitant]
     Dates: start: 20090608

REACTIONS (2)
  - HAEMOTHORAX [None]
  - DISEASE PROGRESSION [None]
